FAERS Safety Report 7333176-7 (Version None)
Quarter: 2011Q1

REPORT INFORMATION
  Report Type: 
  Country: None (occurrence: None)
  Receive Date: 20110304
  Receipt Date: 20110221
  Transmission Date: 20110831
  Serious: Yes (Other)
  Sender: FDA-Public Use
  Company Number: DE-JNJFOC-20110201922

PATIENT
  Sex: Female
  Weight: 53.1 kg

DRUGS (4)
  1. USTEKINUMAB [Suspect]
     Indication: PSORIASIS
     Route: 058
  2. FOLSAN [Concomitant]
     Route: 048
  3. METHOTREXATE [Concomitant]
     Indication: PSORIASIS
     Route: 058
  4. TORASEMID [Concomitant]

REACTIONS (1)
  - CERVIX CARCINOMA STAGE 0 [None]
